FAERS Safety Report 5699347-0 (Version None)
Quarter: 2008Q2

REPORT INFORMATION
  Report Type: 
  Country: None (occurrence: None)
  Receive Date: 20080404
  Receipt Date: 20080325
  Transmission Date: 20081010
  Serious: No
  Sender: FDA-Public Use
  Company Number: APP200800220

PATIENT
  Age: 34 Year
  Sex: Female

DRUGS (4)
  1. CEFOTETAN FOR INJECTION(CEFOTETAN DISODIUM) [Suspect]
     Indication: CAESAREAN SECTION
     Dosage: 2 GM, ONCE, INTRAVENOUS
     Route: 042
     Dates: start: 20070319, end: 20080319
  2. CEFOTETAN FOR INJECTION(CEFOTETAN DISODIUM) [Suspect]
     Indication: PROPHYLAXIS
     Dosage: 2 GM, ONCE, INTRAVENOUS
     Route: 042
     Dates: start: 20070319, end: 20080319
  3. SPINAL EPIDURAL [Concomitant]
  4. PITOCIN [Concomitant]

REACTIONS (5)
  - DRUG EXPOSURE DURING PREGNANCY [None]
  - DYSPNOEA [None]
  - FACE OEDEMA [None]
  - PAIN IN EXTREMITY [None]
  - SWELLING FACE [None]
